FAERS Safety Report 21190728 (Version 1)
Quarter: 2022Q3

REPORT INFORMATION
  Report Type: Spontaneous
  Country: US (occurrence: None)
  Receive Date: 20220809
  Receipt Date: 20220809
  Transmission Date: 20221026
  Serious: Yes (Hospitalization, Disabling, Other)
  Sender: FDA-Public Use
  Company Number: None

PATIENT
  Age: 36 Year
  Sex: Female
  Weight: 76.5 kg

DRUGS (16)
  1. CITROMA [Suspect]
     Active Substance: MAGNESIUM CITRATE
     Indication: Constipation
     Dates: start: 20211120, end: 20220725
  2. MAGNESIUM CITRATE LEMON [Suspect]
     Active Substance: MAGNESIUM CITRATE
  3. PD dialysis [Concomitant]
  4. OXYCODONE [Concomitant]
     Active Substance: OXYCODONE
  5. ALPRAZOLAM [Concomitant]
     Active Substance: ALPRAZOLAM
  6. AMLODIPINE [Concomitant]
     Active Substance: AMLODIPINE BESYLATE
  7. CLONIDINE [Concomitant]
     Active Substance: CLONIDINE
  8. LACTULOSE [Concomitant]
     Active Substance: LACTULOSE
  9. FUROSEMIDE [Concomitant]
     Active Substance: FUROSEMIDE
  10. HYDRALAZINE [Concomitant]
     Active Substance: HYDRALAZINE HYDROCHLORIDE
  11. METOPROLOL [Concomitant]
     Active Substance: METOPROLOL
  12. MINOXIDIL [Concomitant]
     Active Substance: MINOXIDIL
  13. PANTOPRAZOLE [Concomitant]
     Active Substance: PANTOPRAZOLE
  14. VITAMIN D [Concomitant]
     Active Substance: VITAMIN D NOS
  15. BIOTIN [Concomitant]
     Active Substance: BIOTIN
  16. HERBALS [Concomitant]
     Active Substance: HERBALS

REACTIONS (4)
  - Recalled product administered [None]
  - Peritonitis [None]
  - Immunodeficiency [None]
  - Product contamination microbial [None]

NARRATIVE: CASE EVENT DATE: 20220206
